FAERS Safety Report 7215645-3 (Version None)
Quarter: 2011Q1

REPORT INFORMATION
  Report Type: 
  Country: None (occurrence: None)
  Receive Date: 20110107
  Receipt Date: 20101227
  Transmission Date: 20110831
  Serious: Yes (Death, Hospitalization, Other)
  Sender: FDA-Public Use
  Company Number: FR-ACTELION-A-CH2010-42435

PATIENT
  Sex: Female

DRUGS (5)
  1. EUPANTOL [Concomitant]
  2. OFLOCET [Concomitant]
  3. BOSENTAN TABLET 125 MG DUO EU [Suspect]
     Dosage: 62.5 MG, BID
     Route: 048
     Dates: start: 20100528, end: 20100630
  4. COLCHICINE W/PAPAVER SOM LA/TIEMONIUM METHYLS [Concomitant]
  5. BOSENTAN TABLET 125 MG DUO EU [Suspect]
     Indication: PULMONARY ARTERIAL HYPERTENSION
     Dosage: 125 MG, BID
     Route: 048
     Dates: start: 20100701, end: 20101204

REACTIONS (18)
  - RENAL FAILURE ACUTE [None]
  - LIVER FUNCTION TEST ABNORMAL [None]
  - DIALYSIS [None]
  - RESPIRATORY FAILURE [None]
  - BLOOD ALKALINE PHOSPHATASE INCREASED [None]
  - CONCOMITANT DISEASE AGGRAVATED [None]
  - PERIPHERAL ISCHAEMIA [None]
  - LUNG INFECTION [None]
  - AUTONOMIC NERVOUS SYSTEM IMBALANCE [None]
  - PALLIATIVE CARE [None]
  - DYSPNOEA [None]
  - CHOLESTASIS [None]
  - PULMONARY FIBROSIS [None]
  - CYTOLYTIC HEPATITIS [None]
  - EXTREMITY NECROSIS [None]
  - ALANINE AMINOTRANSFERASE INCREASED [None]
  - RENAL FAILURE CHRONIC [None]
  - GAMMA-GLUTAMYLTRANSFERASE INCREASED [None]
